FAERS Safety Report 7965627-9 (Version None)
Quarter: 2011Q4

REPORT INFORMATION
  Report Type: 
  Country: None (occurrence: None)
  Receive Date: 20111208
  Receipt Date: 20111130
  Transmission Date: 20120403
  Serious: Yes (Death, Life-Threatening, Hospitalization, Other)
  Sender: FDA-Public Use
  Company Number: US-NAPPMUNDI-USA-2011-0068420

PATIENT
  Sex: Female
  Weight: 35.374 kg

DRUGS (4)
  1. DIPHENHYDRAMINE HCL [Suspect]
     Indication: PRODUCT USED FOR UNKNOWN INDICATION
  2. OXYCONTIN [Suspect]
     Dosage: 20 MG, TID
     Route: 048
     Dates: start: 20110524
  3. ALCOHOL [Suspect]
     Indication: PRODUCT USED FOR UNKNOWN INDICATION
     Dosage: UNK UNK, UNK
  4. OXYCONTIN [Suspect]
     Indication: BACK PAIN
     Dosage: 80 MG, TID
     Route: 048
     Dates: start: 20110322, end: 20110511

REACTIONS (8)
  - HYPERTENSION [None]
  - SUBSTANCE ABUSE [None]
  - UNRESPONSIVE TO STIMULI [None]
  - ARTERIOSCLEROSIS [None]
  - MULTIPLE DRUG OVERDOSE ACCIDENTAL [None]
  - DRUG DETOXIFICATION [None]
  - OVERDOSE [None]
  - CONVULSION [None]
